FAERS Safety Report 5165756-1 (Version None)
Quarter: 2006Q4

REPORT INFORMATION
  Report Type: 
  Country: None (occurrence: None)
  Receive Date: 20061128
  Receipt Date: 20061121
  Transmission Date: 20070319
  Serious: Yes (Disabling)
  Sender: FDA-Public Use
  Company Number: GXKR2006IT07526

PATIENT
  Age: 42 Year
  Sex: Male

DRUGS (5)
  1. CYCLOSPORINE [Suspect]
     Indication: RENAL TRANSPLANT
     Dosage: 100 MG, BID,
  2. EVEROLIMUS (EVEROLIMUS) [Concomitant]
  3. STEROIDS NOS [Concomitant]
  4. SIMULECT [Concomitant]
  5. CALCIUM CHANNEL BLOCKERS [Concomitant]

REACTIONS (5)
  - BONE DENSITY DECREASED [None]
  - BONE MARROW OEDEMA [None]
  - GAIT DISTURBANCE [None]
  - OSTEOPOROSIS [None]
  - PAIN IN EXTREMITY [None]
